FAERS Safety Report 17914254 (Version 1)
Quarter: 2020Q2

REPORT INFORMATION
  Report Type: Not Available
  Country: MX (occurrence: MX)
  Receive Date: 20200619
  Receipt Date: 20200619
  Transmission Date: 20200714
  Serious: Yes (Death)
  Sender: FDA-Public Use
  Company Number: MX-TEIKOKU PHARMA USA-TPU2020-00319

PATIENT

DRUGS (1)
  1. LIDOCAINE PATCH 5% [Suspect]
     Active Substance: LIDOCAINE
     Indication: NEURALGIA
     Route: 061

REACTIONS (1)
  - Death [Fatal]
